FAERS Safety Report 5186039-X (Version None)
Quarter: 2006Q4

REPORT INFORMATION
  Report Type: 
  Country: None (occurrence: None)
  Receive Date: 20061220
  Receipt Date: 20061017
  Transmission Date: 20070319
  Serious: No
  Sender: FDA-Public Use
  Company Number: US-GLAXOSMITHKLINE-A0623841A

PATIENT
  Age: 16 Year
  Sex: Female

DRUGS (2)
  1. NICODERM CQ [Suspect]
     Dosage: 1PAT PER DAY
     Route: 062
     Dates: start: 20010101, end: 20010101
  2. COMMIT [Suspect]
     Dosage: 4MG UNKNOWN
     Route: 048
     Dates: start: 20061016, end: 20061017

REACTIONS (12)
  - ABDOMINAL PAIN UPPER [None]
  - ANXIETY [None]
  - APPLICATION SITE ERYTHEMA [None]
  - APPLICATION SITE HYPERAESTHESIA [None]
  - APPLICATION SITE PRURITUS [None]
  - HYPERSENSITIVITY [None]
  - INTENTIONAL DRUG MISUSE [None]
  - IRRITABILITY [None]
  - MALAISE [None]
  - NICOTINE DEPENDENCE [None]
  - SALIVARY HYPERSECRETION [None]
  - SKIN IRRITATION [None]
